FAERS Safety Report 9613125 (Version 1)
Quarter: 2013Q3

REPORT INFORMATION
  Report Type: Spontaneous
  Country: US (occurrence: None)
  Receive Date: 20130918
  Receipt Date: 20130918
  Transmission Date: 20140515
  Serious: Yes (Other)
  Sender: FDA-Public Use
  Company Number: 2012032871

PATIENT
  Age: 55 Year
  Sex: Female
  Weight: 52.16 kg

DRUGS (15)
  1. PRIVIGEN [Suspect]
     Indication: IMMUNODEFICIENCY COMMON VARIABLE
     Dosage: 25 G 1/3 WEEKS OVER 4 HOURS, PER MANUFACTURER^S RECOMMENDATIONS AS TOLERATED INTRAVENOUS, 25 G 1/3 WEEKS, 16 ML PER HOUR FOR 15 MINUTES, THEN 51 ML PER HOUR FOR 289 MINUTES IV.
     Route: 042
     Dates: start: 20120713, end: 20120713
  2. NORMAL SALIE (SODIUIM CHLORIDE) [Concomitant]
  3. SODIUM CHLORIDE [Concomitant]
  4. EPI-PEN (EPINEPHRINE) [Concomitant]
  5. OXYGEN (OXYGEN) [Concomitant]
  6. BENADRYL (DIPHENHYDRAMINE HYDROCHLORIDE) [Concomitant]
  7. CYANOCOBALAMIN (CYANOCOBALAMIN) [Concomitant]
  8. CONCERTA (METHYLPHENIDATE HYDROCHLORIDE) [Concomitant]
  9. SONATA (ZALEPLON) [Concomitant]
  10. VITAMIN B12 (CYANOCOBALAMIN) [Concomitant]
  11. ACETAMINOPHEN (PARACETAMOL) [Concomitant]
  12. ALBUTEROL SULFATE (SALBUTAMOL SULFATE) [Concomitant]
  13. AZITHROMYCIN (AZITHROMYCIN) [Concomitant]
  14. MEPRON (ATOVAQUINE) [Concomitant]
  15. ADVAIR (SERETIDE) [Concomitant]

REACTIONS (3)
  - Headache [None]
  - Infusion related reaction [None]
  - Lung infection [None]
